FAERS Safety Report 6297620-9 (Version None)
Quarter: 2009Q3

REPORT INFORMATION
  Report Type: 
  Country: None (occurrence: None)
  Receive Date: 20090805
  Receipt Date: 20090724
  Transmission Date: 20100115
  Serious: Yes (Other)
  Sender: FDA-Public Use
  Company Number: JP-PFIZER INC-2009239115

PATIENT
  Age: 81 Year

DRUGS (4)
  1. DALACIN [Suspect]
     Indication: PNEUMONIA ASPIRATION
     Dosage: 600 MG, UNK
     Route: 042
     Dates: start: 20090629, end: 20090702
  2. NITRODERM [Concomitant]
  3. IMIDAPRIL HYDROCHLORIDE [Concomitant]
     Route: 048
  4. LASIX [Concomitant]
     Route: 048

REACTIONS (2)
  - RENAL IMPAIRMENT [None]
  - RHABDOMYOLYSIS [None]
